FAERS Safety Report 17123070 (Version 1)
Quarter: 2019Q4

REPORT INFORMATION
  Report Type: Spontaneous
  Country: US (occurrence: US)
  Receive Date: 20191206
  Receipt Date: 20191206
  Transmission Date: 20200122
  Serious: Yes (Death, Other)
  Sender: FDA-Public Use
  Company Number: PHHY2018US179336

PATIENT
  Age: 69 Year
  Sex: Male

DRUGS (4)
  1. DABRAFENIB [Suspect]
     Active Substance: DABRAFENIB
     Dosage: 150 MG, QD
     Route: 048
  2. DABRAFENIB [Suspect]
     Active Substance: DABRAFENIB
     Indication: THYROID CANCER
     Dosage: 150 MG, BID
     Route: 048
  3. TRAMETINIB [Suspect]
     Active Substance: TRAMETINIB
     Indication: THYROID CANCER
     Dosage: 2 MG, QD
     Route: 065
  4. DEXAMETHASONE. [Suspect]
     Active Substance: DEXAMETHASONE
     Indication: THYROID CANCER
     Dosage: 8 MG, QD
     Route: 065

REACTIONS (9)
  - Pyrexia [Fatal]
  - Vitreous floaters [Unknown]
  - Rash [Unknown]
  - Pyrexia [Recovered/Resolved]
  - Hepatic enzyme increased [Unknown]
  - Weight increased [Unknown]
  - Stomatitis [Recovered/Resolved]
  - Rash erythematous [Unknown]
  - Platelet count decreased [Unknown]
